FAERS Safety Report 7688924-3 (Version None)
Quarter: 2011Q3

REPORT INFORMATION
  Report Type: 
  Country: None (occurrence: None)
  Receive Date: 20110817
  Receipt Date: 20110810
  Transmission Date: 20111222
  Serious: Yes (Death, Other)
  Sender: FDA-Public Use
  Company Number: IT-PFIZER INC-2011132173

PATIENT

DRUGS (3)
  1. TRAMADOL HCL [Concomitant]
     Dosage: 1 CAPSULE, 2X/DAY
  2. SUTENT [Suspect]
     Indication: RENAL CANCER
     Dosage: 50 MG, 1X/DAY
     Route: 048
     Dates: start: 20071030, end: 20080404
  3. DEXAMETHASONE SODIUM PHOSPHATE [Concomitant]
     Dosage: 20 DROPS, 2X/DAY
     Route: 048

REACTIONS (2)
  - DEATH [None]
  - ANAL ABSCESS [None]
